FAERS Safety Report 8395626 (Version 2)
Quarter: 2013Q2

REPORT INFORMATION
  Report Type: Spontaneous
  Country: US (occurrence: US)
  Receive Date: 20120208
  Receipt Date: 20130509
  Transmission Date: 20140414
  Serious: Yes (Other)
  Sender: FDA-Public Use
  Company Number: US-ROCHE-1037317

PATIENT
  Sex: Female
  Weight: 59.02 kg

DRUGS (3)
  1. ACCUTANE [Suspect]
     Indication: ACNE
     Route: 065
     Dates: start: 1991, end: 1999
  2. ACCUTANE [Suspect]
     Route: 065
     Dates: start: 19970826
  3. ACCUTANE [Suspect]
     Route: 065
     Dates: start: 19991108

REACTIONS (5)
  - Inflammatory bowel disease [Unknown]
  - Ileitis [Unknown]
  - Depression [Not Recovered/Not Resolved]
  - Injury [Unknown]
  - Intestinal obstruction [Unknown]
